FAERS Safety Report 4988447-6 (Version None)
Quarter: 2006Q2

REPORT INFORMATION
  Report Type: 
  Country: None (occurrence: None)
  Receive Date: 20060502
  Receipt Date: 20060425
  Transmission Date: 20061013
  Serious: Yes (Other)
  Sender: FDA-Public Use
  Company Number: US-SOLVAY-00206001405

PATIENT
  Age: 643 Month
  Sex: Male
  Weight: 81.5 kg

DRUGS (4)
  1. SYNTHROID [Concomitant]
     Indication: HYPOTHYROIDISM
     Dosage: DAILY DOSE: 150 MICROGRAM(S)
     Route: 048
     Dates: start: 19960101
  2. ANDROGEL [Suspect]
     Indication: BLOOD TESTOSTERONE DECREASED
     Dosage: DAILY DOSE: 5 GRAM(S)
     Route: 062
     Dates: start: 20020101, end: 20030101
  3. ANDROGEL [Suspect]
     Dosage: DAILY DOSE: 2.5 GRAM(S)
     Route: 062
     Dates: start: 20030101, end: 20060420
  4. ENBREL [Concomitant]
     Indication: ARTHRITIS
     Dosage: DAILY DOSE:  25 MG TWICE A WEEK
     Route: 030
     Dates: start: 20040101

REACTIONS (5)
  - BLOOD TESTOSTERONE INCREASED [None]
  - BODY TEMPERATURE DECREASED [None]
  - CARDIAC FLUTTER [None]
  - HYPOTENSION [None]
  - PERIPHERAL COLDNESS [None]
